FAERS Safety Report 7245190-0 (Version None)
Quarter: 2011Q1

REPORT INFORMATION
  Report Type: 
  Country: None (occurrence: None)
  Receive Date: 20110126
  Receipt Date: 20110118
  Transmission Date: 20110831
  Serious: Yes (Other)
  Sender: FDA-Public Use
  Company Number: PHHY2011AU00886

PATIENT
  Sex: Female

DRUGS (2)
  1. ESTALIS SEQUI [Suspect]
     Dosage: 1 DF, BIW
     Route: 062
     Dates: start: 20101222, end: 20101227
  2. ESTALIS SEQUI [Suspect]
     Indication: HORMONE REPLACEMENT THERAPY
     Dosage: 1 DF, 150/40
     Route: 062
     Dates: start: 20101219

REACTIONS (4)
  - DIZZINESS [None]
  - NAUSEA [None]
  - VISION BLURRED [None]
  - DIARRHOEA [None]
